FAERS Safety Report 6026699-4 (Version None)
Quarter: 2008Q4

REPORT INFORMATION
  Report Type: 
  Country: None (occurrence: None)
  Receive Date: 20081222
  Receipt Date: 20081111
  Transmission Date: 20090506
  Serious: No
  Sender: FDA-Public Use
  Company Number: US-WYE-H06815708

PATIENT
  Age: 51 Year
  Sex: Male
  Weight: 69.46 kg

DRUGS (13)
  1. PRISTIQ [Suspect]
     Indication: DEPRESSION
     Dosage: 25 MG 1X PER 1 DAY, ORAL : 50 MG 1X PER 1 DAY, ORAL
     Route: 048
     Dates: start: 20080901, end: 20081001
  2. PRISTIQ [Suspect]
     Indication: DEPRESSION
     Dosage: 25 MG 1X PER 1 DAY, ORAL : 50 MG 1X PER 1 DAY, ORAL
     Route: 048
     Dates: start: 20081001, end: 20081104
  3. CAPTOPRIL [Concomitant]
  4. COREG [Concomitant]
  5. NEXIUM [Concomitant]
  6. TRICOR [Concomitant]
  7. VIREAD [Concomitant]
  8. VIRAMUNE [Concomitant]
  9. ANDROGEL [Concomitant]
  10. ZOCOR [Concomitant]
  11. LORAZEPAM [Concomitant]
  12. TEMAZEPAM [Concomitant]
  13. PROZAC [Concomitant]

REACTIONS (3)
  - DIZZINESS [None]
  - HEADACHE [None]
  - PARAESTHESIA [None]
